FAERS Safety Report 9716764 (Version 2)
Quarter: 2014Q1

REPORT INFORMATION
  Report Type: Report from Study
  Country: JP (occurrence: JP)
  Receive Date: 20131127
  Receipt Date: 20140128
  Transmission Date: 20141002
  Serious: Yes (Death, Other)
  Sender: FDA-Public Use
  Company Number: JP-B.I. PHARMACEUTICALS,INC./RIDGEFIELD-2013-BI-39168NB

PATIENT
  Sex: Male
  Weight: 41.8 kg

DRUGS (7)
  1. PRADAXA [Suspect]
     Indication: CEREBROVASCULAR ACCIDENT PROPHYLAXIS
     Dosage: 300 MG
     Route: 048
     Dates: start: 20120906, end: 20121001
  2. MEXIRATE (MEXILETINE HYDROCHLORIDE) [Concomitant]
     Indication: VENTRICULAR TACHYCARDIA
     Dosage: 300 MG
     Route: 048
  3. GASTER D (FAMOTIDINE) [Concomitant]
     Indication: PROPHYLAXIS
     Dosage: 20 MG
     Route: 048
  4. MAINTATE (BISOPROLOL FUMARATE) [Concomitant]
     Indication: ATRIAL FIBRILLATION
     Dosage: 2.5 MG
     Route: 048
  5. ALDACTONE A (SPIRONOLACTONE) [Concomitant]
     Indication: CONGESTIVE CARDIOMYOPATHY
     Dosage: 25 MG
     Route: 048
  6. LASIX (FUROSEMIDE) [Concomitant]
     Indication: CONGESTIVE CARDIOMYOPATHY
     Dosage: 60 MG
     Route: 048
  7. SYMMETREL (AMANTADINE HYDROCHLORIDE) [Concomitant]
     Dosage: 100 MG
     Route: 048

REACTIONS (4)
  - Ventricular fibrillation [Fatal]
  - Cardiac failure [Fatal]
  - Multi-organ failure [Fatal]
  - Dysphagia [Unknown]
